FAERS Safety Report 9264907 (Version 1)
Quarter: 2013Q2

REPORT INFORMATION
  Report Type: Spontaneous
  Country: US (occurrence: None)
  Receive Date: 20130430
  Receipt Date: 20130430
  Transmission Date: 20140414
  Serious: Yes (Death)
  Sender: FDA-Public Use
  Company Number: None

PATIENT
  Age: 70 Year
  Sex: Male
  Weight: 97.4 kg

DRUGS (2)
  1. RIVAROXABAN [Suspect]
     Indication: CEREBROVASCULAR ACCIDENT
     Dosage: 20MG  DAILY  ORAL
     Route: 048
     Dates: start: 20130320, end: 20130409
  2. RIVAROXABAN [Suspect]
     Indication: ATRIAL FIBRILLATION
     Dosage: 20MG  DAILY  ORAL
     Route: 048
     Dates: start: 20130320, end: 20130409

REACTIONS (3)
  - Unresponsive to stimuli [None]
  - Haemorrhage intracranial [None]
  - Brain death [None]
